FAERS Safety Report 18927604 (Version 3)
Quarter: 2022Q1

REPORT INFORMATION
  Report Type: Other
  Country: ES (occurrence: ES)
  Receive Date: 20210223
  Receipt Date: 20220119
  Transmission Date: 20220423
  Serious: Yes (Hospitalization)
  Sender: FDA-Public Use
  Company Number: None

PATIENT
  Age: 51 Year
  Sex: Male

DRUGS (11)
  1. OMALIZUMAB [Suspect]
     Active Substance: OMALIZUMAB
     Indication: Asthma
     Dosage: 300 MG, QMO
     Route: 065
  2. LEBRIKIZUMAB [Suspect]
     Active Substance: LEBRIKIZUMAB
     Indication: Asthma
     Dosage: UNK
     Route: 065
     Dates: start: 201503, end: 201608
  3. MONTELUKAST SODIUM [Suspect]
     Active Substance: MONTELUKAST SODIUM
     Indication: Asthma
     Dosage: 10 MG, Q24H
     Route: 065
     Dates: start: 201403
  4. FLUTICASONE PROPIONATE [Suspect]
     Active Substance: FLUTICASONE PROPIONATE
     Indication: Asthma
     Dosage: UNK, BID (TWO PUFFS (CONTAINING SALMETEROL/FLUTICASONE PROPIONATE 22/250))
     Route: 055
     Dates: start: 201403
  5. TIOTROPIUM [Suspect]
     Active Substance: TIOTROPIUM
     Indication: Asthma
     Dosage: 18 UG, Q24H
     Route: 065
     Dates: start: 201403
  6. PREDNISONE [Suspect]
     Active Substance: PREDNISONE
     Indication: Asthma
     Route: 048
     Dates: start: 201403
  7. PREDNISONE [Suspect]
     Active Substance: PREDNISONE
     Dosage: QD (5-10MG)
     Route: 048
     Dates: start: 201503
  8. PREDNISONE [Suspect]
     Active Substance: PREDNISONE
     Dosage: 30 (5- 30 MG)
     Route: 048
     Dates: start: 201608
  9. PREDNISONE [Suspect]
     Active Substance: PREDNISONE
     Route: 048
     Dates: start: 201711
  10. FORMOTEROL [Suspect]
     Active Substance: FORMOTEROL
     Indication: Asthma
     Dosage: UNK UNK, BID (TWO PUFFS (CONTAINING FORMOTEROL/FLUTICASONE PROPIONATE 320 MIGROG/9 MICROG))
     Route: 055
     Dates: start: 201608
  11. METRONIDAZOLE [Concomitant]
     Active Substance: METRONIDAZOLE
     Indication: Blastocystis infection
     Route: 065

REACTIONS (2)
  - Treatment failure [Unknown]
  - Asthma [Unknown]
